FAERS Safety Report 18533388 (Version 1)
Quarter: 2020Q4

REPORT INFORMATION
  Report Type: Spontaneous
  Country: US (occurrence: US)
  Receive Date: 20201120
  Receipt Date: 20201120
  Transmission Date: 20210114
  Serious: Yes (Disabling)
  Sender: FDA-Public Use
  Company Number: None

PATIENT
  Age: 40 Year
  Sex: Female
  Weight: 62.1 kg

DRUGS (3)
  1. ARMOUR THYROID [Concomitant]
     Active Substance: THYROID, PORCINE
  2. FLAGYL [Suspect]
     Active Substance: METRONIDAZOLE\METRONIDAZOLE HYDROCHLORIDE
     Indication: INFECTION
     Dates: start: 20201012, end: 20201015
  3. LEVOTHYROXINE. [Concomitant]
     Active Substance: LEVOTHYROXINE

REACTIONS (8)
  - Formication [None]
  - Neuropathy peripheral [None]
  - Muscle twitching [None]
  - Weight decreased [None]
  - Anxiety [None]
  - Paraesthesia [None]
  - Feeding disorder [None]
  - Dyskinesia [None]

NARRATIVE: CASE EVENT DATE: 20201014
